FAERS Safety Report 6458717-3 (Version None)
Quarter: 2009Q4

REPORT INFORMATION
  Report Type: 
  Country: None (occurrence: None)
  Receive Date: 20091120
  Receipt Date: 20091109
  Transmission Date: 20100525
  Serious: Yes (Hospitalization)
  Sender: FDA-Public Use
  Company Number: 1-20681290

PATIENT
  Age: 69 Year
  Sex: Male

DRUGS (2)
  1. PREDNISOLONE [Suspect]
     Indication: IMMUNOSUPPRESSION
     Dosage: ORAL
     Route: 048
     Dates: start: 20060101
  2. TACROLIMUS [Suspect]
     Indication: IMMUNOSUPPRESSION
     Dosage: ORAL
     Route: 048
     Dates: start: 20060101

REACTIONS (10)
  - ABSCESS LIMB [None]
  - BILE DUCT STONE [None]
  - GENERAL PHYSICAL HEALTH DETERIORATION [None]
  - LUNG ABSCESS [None]
  - METABOLIC ACIDOSIS [None]
  - NOCARDIOSIS [None]
  - OEDEMA PERIPHERAL [None]
  - PYREXIA [None]
  - SUBCUTANEOUS ABSCESS [None]
  - TRANSPLANT REJECTION [None]
